FAERS Safety Report 23549684 (Version 2)
Quarter: 2024Q2

REPORT INFORMATION
  Report Type: Spontaneous
  Country: US (occurrence: US)
  Receive Date: 20240221
  Receipt Date: 20240507
  Transmission Date: 20240716
  Serious: Yes (Death, Hospitalization)
  Sender: FDA-Public Use
  Company Number: US-KARYOPHARM-2024KPT000457

PATIENT

DRUGS (17)
  1. XPOVIO [Suspect]
     Active Substance: SELINEXOR
     Indication: Plasma cell myeloma
     Dosage: 80 MG, WEEKLY
     Route: 048
     Dates: start: 20230713
  2. ACYCLOVIR SODIUM [Concomitant]
     Active Substance: ACYCLOVIR SODIUM
  3. BACTRIM DS [Concomitant]
     Active Substance: SULFAMETHOXAZOLE\TRIMETHOPRIM
  4. CHLORTHALIDONE [Concomitant]
     Active Substance: CHLORTHALIDONE
  5. DEXAMETHASONE [Concomitant]
     Active Substance: DEXAMETHASONE
  6. JARDIANCE [Concomitant]
     Active Substance: EMPAGLIFLOZIN
  7. LEVEMIR [Concomitant]
     Active Substance: INSULIN DETEMIR
  8. METOPROLOL SUCCINATE [Concomitant]
     Active Substance: METOPROLOL SUCCINATE
  9. NOVOLOG [Concomitant]
     Active Substance: INSULIN ASPART
  10. PANTOPRAZOLE [Concomitant]
     Active Substance: PANTOPRAZOLE
  11. POMALYST [Concomitant]
     Active Substance: POMALIDOMIDE
  12. PREDNISONE [Concomitant]
     Active Substance: PREDNISONE
  13. SERTRALINE [Concomitant]
     Active Substance: SERTRALINE HYDROCHLORIDE
  14. VALSARTAN [Concomitant]
     Active Substance: VALSARTAN
  15. VELCADE [Concomitant]
     Active Substance: BORTEZOMIB
  16. XARELTO [Concomitant]
     Active Substance: RIVAROXABAN
  17. ZOFRAN [Concomitant]
     Active Substance: ONDANSETRON HYDROCHLORIDE

REACTIONS (2)
  - Death [Fatal]
  - Chest pain [Unknown]

NARRATIVE: CASE EVENT DATE: 20240201
